FAERS Safety Report 8716525 (Version 2)
Quarter: 2013Q4

REPORT INFORMATION
  Report Type: Spontaneous
  Country: JP (occurrence: JP)
  Receive Date: 20120810
  Receipt Date: 20131031
  Transmission Date: 20140711
  Serious: Yes (Death)
  Sender: FDA-Public Use
  Company Number: JP-009507513-1208JPN002396

PATIENT
  Age: 83 Year
  Sex: Male

DRUGS (4)
  1. TAFLUPROST [Suspect]
     Dosage: UNK
     Route: 047
     Dates: start: 201011, end: 20110330
  2. LUMIGAN [Suspect]
     Indication: OPEN ANGLE GLAUCOMA
     Dosage: 2 GTT, QD
     Route: 047
     Dates: start: 20110330
  3. CRAVIT [Concomitant]
  4. HYALEIN [Concomitant]

REACTIONS (3)
  - Bladder cancer [Fatal]
  - Drug ineffective [Unknown]
  - Conjunctival hyperaemia [Recovering/Resolving]
